FAERS Safety Report 12714919 (Version 2)
Quarter: 2016Q3

REPORT INFORMATION
  Report Type: Spontaneous
  Country: FR (occurrence: FR)
  Receive Date: 20160905
  Receipt Date: 20160906
  Transmission Date: 20161109
  Serious: Yes (Hospitalization)
  Sender: FDA-Public Use
  Company Number: FR-JNJFOC-20160827135

PATIENT
  Age: 70 Year
  Sex: Male
  Weight: 95 kg

DRUGS (14)
  1. TRAMADOL HYDROCHLORIDE. [Suspect]
     Active Substance: TRAMADOL HYDROCHLORIDE
     Indication: PAIN
     Route: 065
     Dates: end: 20160727
  2. DIAMICRON [Concomitant]
     Active Substance: GLICLAZIDE
     Dosage: IN THE MORNING
     Route: 065
  3. MECIR [Concomitant]
     Active Substance: TAMSULOSIN HYDROCHLORIDE
     Dosage: IN THE EVENING
     Route: 065
  4. IKOREL [Concomitant]
     Active Substance: NICORANDIL
     Route: 065
  5. XANAX [Concomitant]
     Active Substance: ALPRAZOLAM
     Route: 065
  6. DISCOTRINE [Concomitant]
     Active Substance: NITROGLYCERIN
     Route: 065
  7. TAREG [Concomitant]
     Active Substance: VALSARTAN
     Dosage: IN THE MORNING
     Route: 065
  8. STABLON [Concomitant]
     Active Substance: TIANEPTINE
     Route: 065
  9. RISPERDAL [Suspect]
     Active Substance: RISPERIDONE
     Indication: PSYCHOTIC DISORDER
     Dosage: HALF TABLET DAILY
     Route: 065
     Dates: end: 20160727
  10. PAROXETINE. [Suspect]
     Active Substance: PAROXETINE
     Indication: PRODUCT USED FOR UNKNOWN INDICATION
     Route: 065
     Dates: start: 20160605, end: 20160727
  11. STAGID [Concomitant]
     Active Substance: METFORMIN PAMOATE
     Route: 065
  12. PIASCLEDINE [Concomitant]
     Active Substance: AVOCADO OIL\SOYBEAN OIL
     Route: 065
  13. JANUVIA [Concomitant]
     Active Substance: SITAGLIPTIN PHOSPHATE
     Dosage: IN THE MORNING
     Route: 065
  14. KARDEGIC [Concomitant]
     Active Substance: ASPIRIN LYSINE
     Dosage: IN THE MIDDAY
     Route: 065

REACTIONS (5)
  - Hyperthermia [Recovered/Resolved]
  - Lactic acidosis [Unknown]
  - Serotonin syndrome [Recovered/Resolved]
  - Disturbance in attention [Recovered/Resolved]
  - Neuroleptic malignant syndrome [Recovered/Resolved]

NARRATIVE: CASE EVENT DATE: 201607
